FAERS Safety Report 11124775 (Version 1)
Quarter: 2015Q2

REPORT INFORMATION
  Report Type: Spontaneous
  Country: None (occurrence: None)
  Receive Date: 20150519
  Receipt Date: 20150519
  Transmission Date: 20150821
  Serious: Yes (Life-Threatening, Hospitalization)
  Sender: FDA-Public Use
  Company Number: None

PATIENT
  Age: 16 Year
  Sex: Male

DRUGS (2)
  1. SULFAMETHOXAZOLE-TRIMETHOPRIM (SMZ) [Suspect]
     Active Substance: SULFAMETHOXAZOLE\TRIMETHOPRIM
     Indication: SKIN INFECTION
     Dates: start: 20150324, end: 20150411
  2. RIFAMPIN. [Concomitant]
     Active Substance: RIFAMPIN

REACTIONS (3)
  - Toxic epidermal necrolysis [None]
  - Stevens-Johnson syndrome [None]
  - Therapeutic response decreased [None]

NARRATIVE: CASE EVENT DATE: 20150411
